FAERS Safety Report 25974813 (Version 1)
Quarter: 2025Q4

REPORT INFORMATION
  Report Type: Spontaneous
  Country: US (occurrence: US)
  Receive Date: 20251029
  Receipt Date: 20251029
  Transmission Date: 20260117
  Serious: No
  Sender: EPIC PHARM
  Company Number: US-EPICPHARMA-US-2025EPCSPO01067

PATIENT
  Age: 17 Year
  Sex: Male
  Weight: 46 kg

DRUGS (11)
  1. ETHAMBUTOL HYDROCHLORIDE [Suspect]
     Active Substance: ETHAMBUTOL HYDROCHLORIDE
     Indication: Mycobacterium avium complex infection
     Route: 065
     Dates: start: 202209, end: 202310
  2. ETHAMBUTOL HYDROCHLORIDE [Suspect]
     Active Substance: ETHAMBUTOL HYDROCHLORIDE
     Indication: Pneumonia
  3. ETHAMBUTOL HYDROCHLORIDE [Suspect]
     Active Substance: ETHAMBUTOL HYDROCHLORIDE
     Route: 065
     Dates: start: 202501
  4. RIFAMPIN [Suspect]
     Active Substance: RIFAMPIN
     Indication: Mycobacterium avium complex infection
     Route: 065
     Dates: start: 202209, end: 202310
  5. RIFAMPIN [Suspect]
     Active Substance: RIFAMPIN
     Indication: Pneumonia
  6. RIFAMPIN [Suspect]
     Active Substance: RIFAMPIN
     Route: 065
     Dates: start: 202501
  7. AZITHROMYCIN [Suspect]
     Active Substance: AZITHROMYCIN
     Indication: Mycobacterium avium complex infection
     Route: 065
     Dates: start: 202209, end: 202310
  8. AZITHROMYCIN [Suspect]
     Active Substance: AZITHROMYCIN
     Indication: Pneumonia
  9. AZITHROMYCIN [Suspect]
     Active Substance: AZITHROMYCIN
     Route: 065
     Dates: start: 202501
  10. JAKAFI [Concomitant]
     Active Substance: RUXOLITINIB
     Route: 065
  11. AMIKACIN [Concomitant]
     Active Substance: AMIKACIN
     Indication: Mycobacterium avium complex infection
     Route: 042
     Dates: start: 202508

REACTIONS (1)
  - Drug ineffective for unapproved indication [Unknown]
